FAERS Safety Report 22359404 (Version 1)
Quarter: 2023Q2

REPORT INFORMATION
  Report Type: Spontaneous
  Country: US (occurrence: None)
  Receive Date: 20230523
  Receipt Date: 20230523
  Transmission Date: 20230721
  Serious: Yes (Death)
  Sender: FDA-Public Use
  Company Number: None

PATIENT
  Age: 64 Year
  Sex: Male
  Weight: 113 kg

DRUGS (22)
  1. AGGRASTAT [Suspect]
     Active Substance: TIROFIBAN HYDROCHLORIDE
     Indication: Acute coronary syndrome
     Route: 041
     Dates: start: 20230508, end: 20230509
  2. ALBUMIN HUMAN [Concomitant]
     Active Substance: ALBUMIN HUMAN
     Dates: start: 20230508, end: 20230509
  3. aspirin 324 mg [Concomitant]
     Dates: start: 20230508, end: 20230508
  4. BUMETANIDE [Concomitant]
     Active Substance: BUMETANIDE
     Dates: start: 20230508, end: 20230509
  5. ETOMIDATE [Concomitant]
     Active Substance: ETOMIDATE
     Dates: start: 20230509, end: 20230509
  6. FENTANYL [Concomitant]
     Active Substance: FENTANYL
     Dates: start: 20230509, end: 20230509
  7. heparin 4000 units [Concomitant]
     Dates: start: 20230508, end: 20230508
  8. SOLU-CORTEF [Concomitant]
     Active Substance: HYDROCORTISONE SODIUM SUCCINATE
     Dates: start: 20230509, end: 20230509
  9. ALBUTEROL\IPRATROPIUM [Concomitant]
     Active Substance: ALBUTEROL\IPRATROPIUM
     Dates: start: 20230508, end: 20230508
  10. MAGNESIUM SULFATE [Concomitant]
     Active Substance: MAGNESIUM SULFATE
     Dates: start: 20230508, end: 20230508
  11. SOLU-MEDROL [Concomitant]
     Active Substance: METHYLPREDNISOLONE SODIUM SUCCINATE
     Dates: start: 20230509, end: 20230509
  12. MIDAZOLAM [Concomitant]
     Active Substance: MIDAZOLAM
     Dates: start: 20230509, end: 20230509
  13. ONDANSETRON [Concomitant]
     Active Substance: ONDANSETRON
     Dates: start: 20230509, end: 20230509
  14. potassium phosphate 15 mmol [Concomitant]
     Dates: start: 20230508, end: 20230509
  15. prasugrel 60 mg [Concomitant]
     Dates: start: 20230508, end: 20230508
  16. ROCURONIUM [Concomitant]
     Active Substance: ROCURONIUM BROMIDE
     Dates: start: 20230509, end: 20230509
  17. ROSUVASTATIN [Concomitant]
     Active Substance: ROSUVASTATIN
     Dates: start: 20230508, end: 20230508
  18. VASOPRESSIN [Concomitant]
     Active Substance: VASOPRESSIN
     Dates: start: 20230509, end: 20230509
  19. Sodium bicarbonate 8.4 % [Concomitant]
     Dates: start: 20230509, end: 20230509
  20. EPINEPHRINE [Concomitant]
     Active Substance: EPINEPHRINE
     Dates: start: 20230509, end: 20230509
  21. epoprostenol arginine [Concomitant]
     Dates: start: 20230509, end: 20230509
  22. NOREPINEPHRINE [Concomitant]
     Active Substance: NOREPINEPHRINE
     Dates: start: 20230508, end: 20230509

REACTIONS (6)
  - Sputum discoloured [None]
  - Pulmonary alveolar haemorrhage [None]
  - Therapy cessation [None]
  - Hypotension [None]
  - Pulseless electrical activity [None]
  - Pulmonary oedema [None]

NARRATIVE: CASE EVENT DATE: 20230509
